FAERS Safety Report 10185447 (Version 2)
Quarter: 2014Q2

REPORT INFORMATION
  Report Type: Spontaneous
  Country: US (occurrence: US)
  Receive Date: 20140521
  Receipt Date: 20140620
  Transmission Date: 20141212
  Serious: No
  Sender: FDA-Public Use
  Company Number: US-PFIZER INC-2014138687

PATIENT
  Age: 73 Year
  Sex: Female
  Weight: 100 kg

DRUGS (7)
  1. GABAPENTIN [Suspect]
     Indication: DIABETIC NEUROPATHY
     Dosage: 300 MG, 1X/DAY
     Route: 048
     Dates: start: 2013
  2. GABAPENTIN [Suspect]
     Indication: NERVE INJURY
     Dosage: 300 MG, 2X/DAY
     Route: 048
     Dates: start: 2013
  3. INSULIN [Concomitant]
     Indication: DIABETES MELLITUS
     Dosage: 40MG IN MORNING, 50MG IN AFTERNOON AND 40MG AT NIGHT
  4. SYNTHROID [Concomitant]
     Indication: HYPOTHYROIDISM
     Dosage: 2 MG, 1X/DAY
     Route: 048
  5. VITAMIN C [Concomitant]
     Dosage: UNK
  6. VITAMIN D [Concomitant]
     Dosage: UNK
  7. IRON [Concomitant]
     Indication: ANAEMIA
     Dosage: UNK

REACTIONS (2)
  - Drug ineffective [Unknown]
  - Depressed mood [Unknown]
